FAERS Safety Report 22146176 (Version 5)
Quarter: 2023Q2

REPORT INFORMATION
  Report Type: Spontaneous
  Country: US (occurrence: US)
  Receive Date: 20230328
  Receipt Date: 20230515
  Transmission Date: 20230721
  Serious: No
  Sender: FDA-Public Use
  Company Number: US-PFIZER INC-202300127015

PATIENT
  Age: 13 Year
  Sex: Male

DRUGS (1)
  1. GENOTROPIN [Suspect]
     Active Substance: SOMATROPIN
     Dosage: UNK (HE TAKES 1.6 AS THE DOSAGE AMOUNT)

REACTIONS (3)
  - Poor quality device used [Unknown]
  - Device delivery system issue [Unknown]
  - Device information output issue [Unknown]
